FAERS Safety Report 8058694-8 (Version None)
Quarter: 2012Q1

REPORT INFORMATION
  Report Type: 
  Country: None (occurrence: None)
  Receive Date: 20120119
  Receipt Date: 20120119
  Transmission Date: 20120608
  Serious: No
  Sender: FDA-Public Use
  Company Number: None

PATIENT
  Sex: Female
  Weight: 60.3284 kg

DRUGS (1)
  1. BONIVA [Suspect]
     Dosage: 1 EACH MONTH 4 YEARS

REACTIONS (4)
  - MUSCLE SPASMS [None]
  - BACK PAIN [None]
  - GAIT DISTURBANCE [None]
  - MOVEMENT DISORDER [None]
